FAERS Safety Report 15210717 (Version 3)
Quarter: 2018Q4

REPORT INFORMATION
  Report Type: Spontaneous
  Country: US (occurrence: US)
  Receive Date: 20180728
  Receipt Date: 20181008
  Transmission Date: 20190204
  Serious: No
  Sender: FDA-Public Use
  Company Number: PHHY2018US056342

PATIENT
  Age: 79 Year
  Sex: Male

DRUGS (3)
  1. TEKTURNA HCT [Interacting]
     Active Substance: ALISKIREN HEMIFUMARATE\HYDROCHLOROTHIAZIDE
     Indication: HYPERTENSION
     Dosage: 150 MG, QD (IN THE MORNING)
     Route: 048
     Dates: start: 20180528, end: 20180721
  2. METOPROLOL. [Suspect]
     Active Substance: METOPROLOL
     Indication: PRODUCT USED FOR UNKNOWN INDICATION
     Dosage: (IN EVENING)
     Route: 065
     Dates: start: 20161127
  3. TEKTURNA HCT [Interacting]
     Active Substance: ALISKIREN HEMIFUMARATE\HYDROCHLOROTHIAZIDE
     Dosage: 75 MG, QD
     Route: 048
     Dates: start: 20180722

REACTIONS (4)
  - Palpitations [Recovered/Resolved]
  - Wrong technique in product usage process [Recovered/Resolved]
  - Drug interaction [Recovered/Resolved]
  - Hypotension [Recovered/Resolved]

NARRATIVE: CASE EVENT DATE: 20180722
